FAERS Safety Report 19053087 (Version 5)
Quarter: 2024Q2

REPORT INFORMATION
  Report Type: Report from Study
  Country: IT (occurrence: IT)
  Receive Date: 20210325
  Receipt Date: 20240625
  Transmission Date: 20240715
  Serious: Yes (Other)
  Sender: FDA-Public Use
  Company Number: IT-CELLTRION INC.-2021IT003818

PATIENT

DRUGS (19)
  1. HERCEPTIN [Suspect]
     Active Substance: TRASTUZUMAB
     Indication: Breast cancer
  2. TRASTUZUMAB [Suspect]
     Active Substance: TRASTUZUMAB
     Indication: Breast cancer
     Dosage: 550 MG, EVERY 3 WEEKS
     Route: 042
     Dates: start: 20190506
  3. TRASTUZUMAB [Suspect]
     Active Substance: TRASTUZUMAB
     Dosage: 414 MG, EVERY 3 WEEKS
     Route: 042
     Dates: start: 20190527, end: 20191003
  4. TRASTUZUMAB [Suspect]
     Active Substance: TRASTUZUMAB
     Dosage: 600 MG, EVERY 3 WEEKS
     Route: 042
     Dates: start: 20200109, end: 20200701
  5. PACLITAXEL [Suspect]
     Active Substance: PACLITAXEL
     Indication: Breast cancer
     Dosage: 140 MG, EVERY 3 WEEKS
     Route: 042
     Dates: start: 20190506
  6. PACLITAXEL [Suspect]
     Active Substance: PACLITAXEL
     Dosage: 120 MG, EVERY 3 WEEKS
     Route: 042
     Dates: start: 20190909, end: 20190916
  7. CARBOPLATIN [Suspect]
     Active Substance: CARBOPLATIN
     Indication: Breast cancer
     Dosage: 750 MG, EVERY 3 WEEKS
     Route: 042
     Dates: start: 20190506
  8. CARBOPLATIN [Suspect]
     Active Substance: CARBOPLATIN
     Dosage: 600 MG, EVERY 3 WEEKS
     Route: 042
     Dates: start: 20190909, end: 20190909
  9. PERTUZUMAB [Suspect]
     Active Substance: PERTUZUMAB
     Indication: Breast cancer
     Dosage: 840 MG, EVERY 3 WEEKS
     Route: 042
     Dates: start: 20190506, end: 20190506
  10. PERTUZUMAB [Suspect]
     Active Substance: PERTUZUMAB
     Dosage: 420 MG, EVERY 3 WEEKS
     Route: 042
     Dates: start: 20190527, end: 20191003
  11. TRIPTORELIN [Suspect]
     Active Substance: TRIPTORELIN
     Indication: Breast cancer
     Dosage: 3.75 MG, Q4WEEKS
     Route: 048
     Dates: start: 20190503
  12. PANTOPRAZOLE [Concomitant]
     Active Substance: PANTOPRAZOLE
     Dosage: ONGOING = CHECKED
     Dates: start: 20191003
  13. ALIZAPRIDE HYDROCHLORIDE [Concomitant]
     Active Substance: ALIZAPRIDE HYDROCHLORIDE
     Dosage: ONGOING = CHECKED
     Dates: start: 20190506
  14. TRIMETON [Concomitant]
     Active Substance: CHLORPHENIRAMINE MALEATE
     Dosage: ONGOING = CHECKED
     Dates: start: 20190506
  15. RANITIDINE [Concomitant]
     Active Substance: RANITIDINE
     Dosage: ONGOING = CHECKED
     Dates: start: 20190506
  16. DEXAMETHASONE [Concomitant]
     Active Substance: DEXAMETHASONE
     Dosage: ONGOING = NOT CHECKED
     Dates: start: 20190506, end: 20190909
  17. DEXAMETHASONE [Concomitant]
     Active Substance: DEXAMETHASONE
     Dosage: ONGOING = NOT CHECKED
     Dates: start: 20190603, end: 20190826
  18. DEXAMETHASONE [Concomitant]
     Active Substance: DEXAMETHASONE
     Dosage: ONGOING = CHECKED
     Dates: start: 20190916
  19. ZOFRAN [Concomitant]
     Active Substance: ONDANSETRON HYDROCHLORIDE
     Dosage: ONGOING = CHECKED
     Dates: start: 20190603

REACTIONS (4)
  - Neutropenia [Recovered/Resolved]
  - Febrile neutropenia [Recovered/Resolved]
  - Leukopenia [Recovered/Resolved]
  - Off label use [Unknown]

NARRATIVE: CASE EVENT DATE: 20190831
